FAERS Safety Report 4593639-4 (Version None)
Quarter: 2005Q1

REPORT INFORMATION
  Report Type: 
  Country: None (occurrence: None)
  Receive Date: 20050224
  Receipt Date: 20041012
  Transmission Date: 20050727
  Serious: No
  Sender: FDA-Public Use
  Company Number: US-BRISTOL-MYERS SQUIBB COMPANY-12736237

PATIENT
  Age: 62 Year
  Sex: Female
  Weight: 111 kg

DRUGS (9)
  1. EXCEDRIN (MIGRAINE) [Suspect]
     Indication: MIGRAINE
     Dosage: TAKEN 3-4 TIMES PER WEEK
     Route: 048
  2. FIORINAL [Concomitant]
  3. PRINIVIL [Concomitant]
  4. ELAVIL [Concomitant]
  5. HYDROCHLOROTHIAZIDE [Concomitant]
  6. PERPHENAZINE [Concomitant]
  7. ATIVAN [Concomitant]
  8. IMITREX [Concomitant]
  9. PROPRANOLOL [Concomitant]

REACTIONS (1)
  - DRUG INEFFECTIVE [None]
